FAERS Safety Report 14828334 (Version 4)
Quarter: 2018Q4

REPORT INFORMATION
  Report Type: Spontaneous
  Country: US (occurrence: US)
  Receive Date: 20180430
  Receipt Date: 20181002
  Transmission Date: 20190204
  Serious: Yes (Other)
  Sender: FDA-Public Use
  Company Number: US-UCBSA-2018017815

PATIENT
  Age: 57 Year
  Sex: Female

DRUGS (1)
  1. CIMZIA [Suspect]
     Active Substance: CERTOLIZUMAB PEGOL
     Indication: RHEUMATOID ARTHRITIS
     Dosage: UNK (NDC NO: NDC #: 50474071079)
     Dates: start: 201605, end: 20180914

REACTIONS (11)
  - Cerebrovascular accident [Unknown]
  - Neuropathy peripheral [Unknown]
  - Fall [Unknown]
  - Road traffic accident [Unknown]
  - Tremor [Unknown]
  - Hand fracture [Unknown]
  - Head injury [Unknown]
  - Balance disorder [Unknown]
  - Drug effect decreased [Unknown]
  - Pain [Unknown]
  - Joint injury [Unknown]

NARRATIVE: CASE EVENT DATE: 201802
